FAERS Safety Report 7294657-8 (Version None)
Quarter: 2011Q1

REPORT INFORMATION
  Report Type: 
  Country: None (occurrence: None)
  Receive Date: 20110216
  Receipt Date: 20110202
  Transmission Date: 20110831
  Serious: Yes (Other)
  Sender: FDA-Public Use
  Company Number: US-BAYER-2010-003044

PATIENT
  Sex: Male
  Weight: 64.41 kg

DRUGS (2)
  1. SORAFENIB (RAF KINASE INHIBITOR) [Suspect]
     Indication: HEPATIC NEOPLASM MALIGNANT
     Dosage: 400 MG, BID
     Dates: start: 20101017, end: 20101001
  2. SORAFENIB (RAF KINASE INHIBITOR) [Suspect]
     Dosage: 200 MG, QD
     Dates: start: 20101101

REACTIONS (7)
  - ASTHENIA [None]
  - MUSCULOSKELETAL PAIN [None]
  - ALOPECIA [None]
  - SKIN ULCER [None]
  - CHOLELITHIASIS [None]
  - ALPHA 1 FOETOPROTEIN INCREASED [None]
  - OEDEMA PERIPHERAL [None]
